FAERS Safety Report 9551562 (Version 1)
Quarter: 2013Q3

REPORT INFORMATION
  Report Type: Spontaneous
  Country: US (occurrence: US)
  Receive Date: 20130925
  Receipt Date: 20130925
  Transmission Date: 20140515
  Serious: Yes (Other)
  Sender: FDA-Public Use
  Company Number: US-BAYER-2013-115532

PATIENT
  Age: 41 Year
  Sex: Female
  Weight: 70.3 kg

DRUGS (5)
  1. YAZ [Suspect]
  2. PENTASA [Concomitant]
     Dosage: 500 MG, 1 CAPSULE, CONTROL RELEASE QID 4 TIMES/DAY
     Route: 048
  3. IMURAN [Concomitant]
     Dosage: 3 TABS DAILY
     Route: 048
  4. VICODIN [Concomitant]
     Indication: PAIN
     Dosage: 5-500 MG TABS EVERY 6 HOURS AS NEEDED
     Route: 048
  5. NAPROXEN SODIUM [Concomitant]
     Indication: ARTHRALGIA
     Dosage: 55 MG, BID
     Route: 048

REACTIONS (3)
  - Deep vein thrombosis [None]
  - Deep vein thrombosis [None]
  - Pain in extremity [None]
